FAERS Safety Report 15330261 (Version 1)
Quarter: 2018Q3

REPORT INFORMATION
  Report Type: Spontaneous
  Country: US (occurrence: US)
  Receive Date: 20180824
  Receipt Date: 20180824
  Transmission Date: 20181010
  Serious: Yes (Life-Threatening)
  Sender: FDA-Public Use
  Company Number: None

PATIENT
  Age: 77 Year
  Sex: Female
  Weight: 49.5 kg

DRUGS (3)
  1. PROVENTIL HFA [Concomitant]
     Active Substance: ALBUTEROL SULFATE
     Dates: start: 20170113
  2. BROVANA [Suspect]
     Active Substance: ARFORMOTEROL TARTRATE
     Indication: CHRONIC OBSTRUCTIVE PULMONARY DISEASE
     Route: 002
  3. BUDESONIDE. [Concomitant]
     Active Substance: BUDESONIDE
     Dates: start: 20170113

REACTIONS (2)
  - Rash [None]
  - Swelling face [None]

NARRATIVE: CASE EVENT DATE: 20171003
